FAERS Safety Report 10786106 (Version 1)
Quarter: 2015Q1

REPORT INFORMATION
  Report Type: Spontaneous
  Country: US (occurrence: US)
  Receive Date: 20150211
  Receipt Date: 20150211
  Transmission Date: 20150721
  Serious: No
  Sender: FDA-Public Use
  Company Number: US-SHIRE-US201501062

PATIENT
  Age: 9 Year
  Sex: Female

DRUGS (1)
  1. VYVANSE [Suspect]
     Active Substance: LISDEXAMFETAMINE DIMESYLATE
     Indication: INTENTIONAL OVERDOSE
     Dosage: 90 MG (THREE 30 MG CAPSULES), ONE DOSE
     Route: 048

REACTIONS (3)
  - Intentional overdose [Recovered/Resolved]
  - Drug diversion [Recovered/Resolved]
  - Intentional product misuse [Recovered/Resolved]
